FAERS Safety Report 10355847 (Version 2)
Quarter: 2014Q3

REPORT INFORMATION
  Report Type: Spontaneous
  Country: US (occurrence: US)
  Receive Date: 20140801
  Receipt Date: 20140925
  Transmission Date: 20150326
  Serious: Yes (Hospitalization)
  Sender: FDA-Public Use
  Company Number: US-AMGEN-USASP2014057745

PATIENT
  Age: 64 Year
  Sex: Female

DRUGS (1)
  1. PROCRIT [Suspect]
     Active Substance: ERYTHROPOIETIN
     Indication: ANAEMIA
     Dosage: 20000 UNIT, EVERY 2 WEEKS
     Route: 058
     Dates: start: 20140514

REACTIONS (3)
  - Type 2 diabetes mellitus [Unknown]
  - Renal failure chronic [Unknown]
  - Nephritis [Unknown]

NARRATIVE: CASE EVENT DATE: 20140709
